FAERS Safety Report 15958122 (Version 1)
Quarter: 2019Q1

REPORT INFORMATION
  Report Type: Spontaneous
  Country: BR (occurrence: BR)
  Receive Date: 20190213
  Receipt Date: 20190213
  Transmission Date: 20190417
  Serious: Yes (Hospitalization)
  Sender: FDA-Public Use
  Company Number: BR-PFIZER INC-2019050198

PATIENT
  Age: 93 Year
  Sex: Female

DRUGS (10)
  1. TICLOPIDINE [Concomitant]
     Active Substance: TICLOPIDINE
     Dosage: UNK
  2. LORAX//LORAZEPAM [Suspect]
     Active Substance: LORAZEPAM
     Indication: DEPRESSION
     Dosage: 1 TABLET OF 2 MG AT NIGHT AND 1 TABLET OF 1 MG IN THE MORNING, EVERY DAY
     Dates: start: 1969
  3. SYNTHROID [Concomitant]
     Active Substance: LEVOTHYROXINE SODIUM
     Indication: THYROID DISORDER
     Dosage: UNK
  4. OMEPRAZOLE. [Concomitant]
     Active Substance: OMEPRAZOLE
     Dosage: UNK
  5. LORAX//LORAZEPAM [Suspect]
     Active Substance: LORAZEPAM
     Dosage: 1 TABLET OF 2 MG A DAY
     Dates: end: 20190206
  6. LABIRIN [Concomitant]
     Active Substance: BETAHISTINE
     Dosage: UNK
  7. CONCOR [Concomitant]
     Active Substance: BISOPROLOL FUMARATE
     Dosage: UNK
  8. CEBRALAT [Concomitant]
     Active Substance: CILOSTAZOL
     Dosage: UNK
  9. LORAX//LORAZEPAM [Suspect]
     Active Substance: LORAZEPAM
     Dosage: 1 TABLET OF 2 MG AT NIGHT AND 1 TABLET OF 1 MG IN THE MORNING, EVERY DAY
     Dates: start: 1969
  10. CLOMIPRAMINE [Concomitant]
     Active Substance: CLOMIPRAMINE
     Dosage: UNK

REACTIONS (3)
  - Product use issue [Unknown]
  - Arterial occlusive disease [Recovered/Resolved]
  - Somnolence [Recovered/Resolved]

NARRATIVE: CASE EVENT DATE: 1969
